FAERS Safety Report 4304334-0 (Version None)
Quarter: 2004Q1

REPORT INFORMATION
  Report Type: 
  Country: None (occurrence: None)
  Receive Date: 20040224
  Receipt Date: 20040211
  Transmission Date: 20041129
  Serious: Yes (Hospitalization, Other)
  Sender: FDA-Public Use
  Company Number: 2004009330

PATIENT
  Age: 29 Year
  Sex: Female
  Weight: 47.1741 kg

DRUGS (1)
  1. DILANTIN [Suspect]
     Indication: ILL-DEFINED DISORDER
     Dosage: 300 MG
     Dates: start: 20031101

REACTIONS (2)
  - OLIGODENDROGLIOMA [None]
  - PAIN IN EXTREMITY [None]
